FAERS Safety Report 11097562 (Version 1)
Quarter: 2015Q2

REPORT INFORMATION
  Report Type: Spontaneous
  Country: US (occurrence: None)
  Receive Date: 20150507
  Receipt Date: 20150507
  Transmission Date: 20150821
  Serious: Yes (Hospitalization)
  Sender: FDA-Public Use
  Company Number: None

PATIENT
  Age: 78 Year
  Sex: Male

DRUGS (1)
  1. TASIGNA [Suspect]
     Active Substance: NILOTINIB
     Indication: CHRONIC MYELOID LEUKAEMIA
     Dosage: 150 MG 2 CAPS BID ORAL
     Route: 048
     Dates: start: 20150408

REACTIONS (2)
  - Pleural effusion [None]
  - Cardiac failure congestive [None]

NARRATIVE: CASE EVENT DATE: 20150506
